FAERS Safety Report 6097537-9 (Version None)
Quarter: 2009Q1

REPORT INFORMATION
  Report Type: 
  Country: None (occurrence: None)
  Receive Date: 20090227
  Receipt Date: 20081003
  Transmission Date: 20090719
  Serious: Yes (Other)
  Sender: FDA-Public Use
  Company Number: A0750474A

PATIENT
  Sex: Female

DRUGS (4)
  1. IMITREX [Suspect]
     Indication: MIGRAINE
     Dosage: 6MG AS REQUIRED
     Route: 058
     Dates: start: 20040101
  2. UNSPECIFIED MEDICATION [Concomitant]
  3. KEPPRA [Concomitant]
  4. BIRTH CONTROL PILL [Concomitant]

REACTIONS (2)
  - CONVULSION [None]
  - DRUG INEFFECTIVE [None]
